FAERS Safety Report 6493271-1 (Version None)
Quarter: 2009Q4

REPORT INFORMATION
  Report Type: 
  Country: None (occurrence: None)
  Receive Date: 20091211
  Receipt Date: 20091211
  Transmission Date: 20100525
  Serious: Yes (Hospitalization)
  Sender: FDA-Public Use
  Company Number: None

PATIENT
  Age: 78 Year
  Sex: Male
  Weight: 90.7194 kg

DRUGS (1)
  1. NITROFUR LIQUID [Suspect]
     Indication: URINARY TRACT INFECTION
     Dosage: 100MG 2 PER DAY OTIC
     Dates: start: 20091124, end: 20091208

REACTIONS (2)
  - ASTHENIA [None]
  - URINARY TRACT INFECTION [None]
